FAERS Safety Report 5702775-8 (Version None)
Quarter: 2008Q2

REPORT INFORMATION
  Report Type: 
  Country: None (occurrence: None)
  Receive Date: 20080410
  Receipt Date: 20080410
  Transmission Date: 20081010
  Serious: Yes (Death)
  Sender: FDA-Public Use
  Company Number: None

PATIENT
  Sex: Male
  Weight: 37 kg

DRUGS (28)
  1. VAPRISOL [Suspect]
     Indication: HYPONATRAEMIA
     Dosage: 20 MG ONCE IV BOLUS ;  20 MG ONCE IV DRIP
     Route: 041
     Dates: start: 20071003, end: 20071004
  2. VAPRISOL [Suspect]
     Indication: HYPONATRAEMIA
     Dosage: 20 MG ONCE IV BOLUS ;  20 MG ONCE IV DRIP
     Route: 041
     Dates: start: 20071126, end: 20071127
  3. FLUCONAZOLE [Concomitant]
  4. DEFEROXAMINE MESYLATE [Concomitant]
  5. SULFAMETHOXAZOLE AND TRIMETHOPRIM [Concomitant]
  6. PANTOPRAZOLE SODIUM [Concomitant]
  7. LEVETIRACETAM [Concomitant]
  8. OXCARBAZEPINE [Concomitant]
  9. DIAZAPAM [Concomitant]
  10. GABAPENTIN [Concomitant]
  11. AMLODIPINE [Concomitant]
  12. LABETALOL HCL [Concomitant]
  13. MILRINONE LACTATE [Concomitant]
  14. FUROSEMIDE [Concomitant]
  15. CHLOROTHIAZIDE [Concomitant]
  16. NUTROPIN [Concomitant]
  17. ACETYLCYSTEINE [Concomitant]
  18. FLUDROCORTISONE ACETATE [Concomitant]
  19. LEVOTHYROXINE SODIUM [Concomitant]
  20. RIBOFLAVIN TAB [Concomitant]
  21. AMITRIPTYLINE HCL [Concomitant]
  22. BIOTIN [Concomitant]
  23. PARICALCITOL [Concomitant]
  24. VITAMIN E [Concomitant]
  25. CITALOPRAM HYDROBROMIDE [Concomitant]
  26. KETOROLAC TROMETHAMINE [Concomitant]
  27. HYDROXYZINE [Concomitant]
  28. LEVOCARNITINE [Concomitant]

REACTIONS (1)
  - CARDIAC ARREST [None]
